FAERS Safety Report 7204127-0 (Version None)
Quarter: 2010Q4

REPORT INFORMATION
  Report Type: 
  Country: None (occurrence: None)
  Receive Date: 20101230
  Receipt Date: 20101227
  Transmission Date: 20110411
  Serious: Yes (Other)
  Sender: FDA-Public Use
  Company Number: JP-ROCHE-735697

PATIENT
  Sex: Male
  Weight: 49 kg

DRUGS (12)
  1. ACTEMRA [Suspect]
     Indication: RHEUMATOID ARTHRITIS
     Route: 041
     Dates: start: 20100208, end: 20100922
  2. RIMATIL [Concomitant]
     Indication: RHEUMATOID ARTHRITIS
     Dosage: FORM: PERORAL AGENT.
     Route: 048
     Dates: end: 20100702
  3. AZULFIDINE [Concomitant]
     Dosage: FORM: ENTERIC COATING DRUG.
     Route: 048
  4. PROGRAFT [Concomitant]
     Route: 048
     Dates: start: 20091101, end: 20100501
  5. ANPLAG [Concomitant]
     Dosage: FORM: PERORAL AGENT.
     Route: 048
  6. FAMOTIDINE [Concomitant]
     Dosage: DRUG NAME: GASRICK D, FORM: PERORAL AGENT.
     Route: 048
  7. ALFACALCIDOL [Concomitant]
     Route: 048
  8. PREDONINE [Concomitant]
     Route: 048
  9. PREDONINE [Concomitant]
     Route: 048
     Dates: start: 20101020
  10. PREDONINE [Concomitant]
     Route: 048
  11. BACTRIM [Concomitant]
     Route: 048
     Dates: start: 20100101
  12. FOSAMAX [Concomitant]
     Route: 048
     Dates: start: 20100101

REACTIONS (4)
  - CUTANEOUS VASCULITIS [None]
  - MONONEUROPATHY MULTIPLEX [None]
  - RHEUMATOID ARTHRITIS [None]
  - SKIN ULCER [None]
